FAERS Safety Report 19968489 (Version 1)
Quarter: 2021Q4

REPORT INFORMATION
  Report Type: Spontaneous
  Country: CA (occurrence: CA)
  Receive Date: 20211019
  Receipt Date: 20211019
  Transmission Date: 20220303
  Serious: Yes (Hospitalization, Other)
  Sender: FDA-Public Use
  Company Number: CA-MYLANLABS-2021M1073912

PATIENT
  Age: 80 Year
  Sex: Male

DRUGS (3)
  1. PANTOPRAZOLE [Suspect]
     Active Substance: PANTOPRAZOLE
     Indication: Gastrooesophageal reflux disease
     Dosage: 40 MILLIGRAM, QD
     Route: 048
     Dates: start: 20110722
  2. PACLITAXEL [Suspect]
     Active Substance: PACLITAXEL
     Indication: Pancreatic carcinoma metastatic
     Dosage: 175 MILLIGRAM/SQ. METER, ON DAYS 1, 8, AND 15 OF EACH 28-DAY CYCLE
     Route: 065
  3. GEMCITABINE [Suspect]
     Active Substance: GEMCITABINE
     Indication: Pancreatic carcinoma metastatic
     Dosage: 1400 MILLIGRAM/SQ. METER, ON DAYS 1, 8, AND 15 OF EACH 28-DAY CYCLE
     Route: 065

REACTIONS (5)
  - Febrile neutropenia [Unknown]
  - Fatigue [Unknown]
  - Pancreatic enzyme abnormality [Recovering/Resolving]
  - Drug withdrawal syndrome [Recovering/Resolving]
  - Unmasking of previously unidentified disease [Recovering/Resolving]
